FAERS Safety Report 16387890 (Version 2)
Quarter: 2019Q2

REPORT INFORMATION
  Report Type: Spontaneous
  Country: JP (occurrence: JP)
  Receive Date: 20190604
  Receipt Date: 20190625
  Transmission Date: 20190711
  Serious: Yes (Hospitalization, Other)
  Sender: FDA-Public Use
  Company Number: JP-SA-2019SA147318

PATIENT
  Age: 74 Year
  Sex: Male

DRUGS (2)
  1. DOCETAXEL. [Suspect]
     Active Substance: DOCETAXEL
     Indication: ADENOCARCINOMA
     Route: 041
  2. RAMUCIRUMAB [Concomitant]
     Active Substance: RAMUCIRUMAB
     Indication: ADENOCARCINOMA
     Route: 065

REACTIONS (9)
  - Hypopnoea [Recovering/Resolving]
  - Depressed level of consciousness [Recovering/Resolving]
  - Haemothorax [Recovering/Resolving]
  - Shock haemorrhagic [Recovering/Resolving]
  - Pleural effusion [Recovering/Resolving]
  - Infusion site extravasation [Unknown]
  - Fall [Recovering/Resolving]
  - Arterial haemorrhage [Recovered/Resolved]
  - Pulse absent [Recovering/Resolving]
